FAERS Safety Report 18458198 (Version 1)
Quarter: 2020Q4

REPORT INFORMATION
  Report Type: Spontaneous
  Country: PT (occurrence: PT)
  Receive Date: 20201103
  Receipt Date: 20201103
  Transmission Date: 20210114
  Serious: Yes (Other)
  Sender: FDA-Public Use
  Company Number: PT-SUN PHARMACEUTICAL INDUSTRIES LTD-2020R1-265848

PATIENT
  Age: 71 Year
  Sex: Female

DRUGS (1)
  1. NALTREXONE [Suspect]
     Active Substance: NALTREXONE
     Indication: BENIGN FAMILIAL PEMPHIGUS
     Dosage: 3 MILLIGRAM, QD (NIGHTLY)
     Route: 065

REACTIONS (2)
  - Off label use [Recovering/Resolving]
  - Therapeutic response unexpected [Recovering/Resolving]
